FAERS Safety Report 9663104 (Version 1)
Quarter: 2013Q4

REPORT INFORMATION
  Report Type: Spontaneous
  Country: US (occurrence: US)
  Receive Date: 20131101
  Receipt Date: 20131101
  Transmission Date: 20140711
  Serious: No
  Sender: FDA-Public Use
  Company Number: US-B.I. PHARMACEUTICALS,INC./RIDGEFIELD-2013-BI-33744BP

PATIENT
  Age: 76 Year
  Sex: Female

DRUGS (9)
  1. ZANTAC (RANITIDINE HYDROCHLORIDE) [Suspect]
     Indication: URTICARIA
     Dosage: 75 MG
     Route: 055
     Dates: start: 20131014, end: 20131014
  2. ANTIHISTAMINES [Concomitant]
     Indication: HYPERSENSITIVITY
     Route: 048
     Dates: start: 2013
  3. DIAZIDE [Concomitant]
     Indication: FLUID RETENTION
     Dosage: DOSE PER APPLICATION: 37.5 MG /25MG; DAILY DOSE: 37.5 MG /25MG
     Route: 048
     Dates: start: 2007
  4. DIAZIDE [Concomitant]
     Indication: BLOOD PRESSURE INCREASED
  5. SYNTHEROID [Concomitant]
     Indication: HYPOTHYROIDISM
     Dosage: 0.137 MG
     Route: 048
     Dates: start: 1963
  6. ALLERGY SHOTS [Concomitant]
     Indication: HYPERSENSITIVITY
     Dosage: FORMULATION:SUBCUTANEOUS.
     Route: 058
     Dates: start: 2008
  7. BENADRYL [Concomitant]
     Indication: HYPERSENSITIVITY
     Route: 048
     Dates: start: 2007
  8. NEXIUM [Concomitant]
     Indication: GASTROOESOPHAGEAL REFLUX DISEASE
     Dosage: 20 MG
     Route: 048
     Dates: start: 2007
  9. HORMONE REPLACEMENT [Concomitant]
     Indication: MENOPAUSE
     Route: 048
     Dates: start: 2000

REACTIONS (4)
  - Muscle spasms [Recovered/Resolved]
  - Diarrhoea [Recovered/Resolved]
  - Eructation [Recovered/Resolved]
  - Off label use [Recovered/Resolved]
